FAERS Safety Report 8557833-X (Version None)
Quarter: 2012Q3

REPORT INFORMATION
  Report Type: 
  Country: None (occurrence: None)
  Receive Date: 20120801
  Receipt Date: 20120723
  Transmission Date: 20120928
  Serious: Yes (Hospitalization)
  Sender: FDA-Public Use
  Company Number: US-GLAXOSMITHKLINE-A0986356A

PATIENT
  Age: 35 Year
  Sex: Female

DRUGS (6)
  1. ELMIRON [Concomitant]
  2. HYDROCODONE [Concomitant]
  3. BENEFIBER [Concomitant]
  4. LORAZEPAM [Concomitant]
  5. AMBIEN [Concomitant]
  6. LAMICTAL [Suspect]
     Indication: DEPRESSION
     Dosage: 150MG PER DAY
     Route: 048

REACTIONS (2)
  - MATERNAL EXPOSURE DURING PREGNANCY [None]
  - VAGINAL HAEMORRHAGE [None]
